FAERS Safety Report 14302654 (Version 1)
Quarter: 2017Q4

REPORT INFORMATION
  Report Type: Spontaneous
  Country: PL (occurrence: PL)
  Receive Date: 20171219
  Receipt Date: 20171219
  Transmission Date: 20180321
  Serious: Yes (Hospitalization)
  Sender: FDA-Public Use
  Company Number: PL-CIPLA LTD.-2017PL22947

PATIENT

DRUGS (1)
  1. TOPIRAMATE. [Suspect]
     Active Substance: TOPIRAMATE
     Dosage: 2500 MG, TOTAL DOSE
     Route: 048

REACTIONS (8)
  - Bradykinesia [Recovered/Resolved]
  - Vertigo [Recovered/Resolved]
  - Metabolic acidosis [Recovered/Resolved]
  - Partial seizures with secondary generalisation [Recovered/Resolved]
  - Coma [Recovered/Resolved]
  - Somnolence [Recovered/Resolved]
  - Overdose [Unknown]
  - Bradyphagia [Recovered/Resolved]
